FAERS Safety Report 14254197 (Version 3)
Quarter: 2019Q4

REPORT INFORMATION
  Report Type: Spontaneous
  Country: US (occurrence: US)
  Receive Date: 20171205
  Receipt Date: 20191126
  Transmission Date: 20200122
  Serious: Yes (Other)
  Sender: FDA-Public Use
  Company Number: US-PFIZER INC-2017518045

PATIENT
  Age: 42 Year
  Sex: Male

DRUGS (3)
  1. CIALIS [Suspect]
     Active Substance: TADALAFIL
     Indication: ERECTILE DYSFUNCTION
     Dosage: 5 MG, 2X/WEEK
     Route: 048
     Dates: end: 20160819
  2. VIAGRA [Suspect]
     Active Substance: SILDENAFIL CITRATE
     Indication: ERECTILE DYSFUNCTION
     Dosage: 100 MG, 2X/WEEK
     Route: 048
     Dates: start: 20010418, end: 20030115
  3. CIALIS [Suspect]
     Active Substance: TADALAFIL
     Dosage: 20 MG, 2X/WEEK
     Route: 048
     Dates: end: 20160819

REACTIONS (1)
  - Malignant melanoma [Unknown]

NARRATIVE: CASE EVENT DATE: 200208
